APPROVED DRUG PRODUCT: TRAVATAN
Active Ingredient: TRAVOPROST
Strength: 0.004% **Federal Register determination that product was not discontinued or withdrawn for safety or effectiveness reasons**
Dosage Form/Route: SOLUTION/DROPS;OPHTHALMIC
Application: N021257 | Product #001
Applicant: ALCON PHARMACEUTICALS LTD
Approved: Mar 16, 2001 | RLD: Yes | RS: No | Type: DISCN